FAERS Safety Report 5932746-8 (Version None)
Quarter: 2008Q4

REPORT INFORMATION
  Report Type: 
  Country: None (occurrence: None)
  Receive Date: 20081028
  Receipt Date: 20081022
  Transmission Date: 20090506
  Serious: Yes (Death, Hospitalization, Other)
  Sender: FDA-Public Use
  Company Number: PHHO2008AT09194

PATIENT
  Sex: Male

DRUGS (31)
  1. BASILIXIMAB [Suspect]
     Indication: LIVER TRANSPLANT
     Dosage: UNK
     Route: 042
     Dates: start: 20080703
  2. MYCOPHENOLATE MOFETIL [Suspect]
     Indication: LIVER TRANSPLANT
     Dosage: 2 GRAM 1 DAY
     Route: 048
     Dates: start: 20080703
  3. DIPIDOLOR [Concomitant]
  4. NOVALGIN [Concomitant]
  5. PREDNISOLONE [Concomitant]
  6. VALCYTE [Concomitant]
  7. PANTOPRAZOLE SODIUM [Concomitant]
  8. URSO FALK [Concomitant]
  9. DILATREND [Concomitant]
  10. SEROQUEL [Concomitant]
  11. LASILACTONE [Concomitant]
  12. PERFALGAN [Concomitant]
  13. BACTRIM [Concomitant]
  14. VOLTAREN [Concomitant]
  15. LOVENOX [Concomitant]
  16. ORNITHINE [Concomitant]
  17. FOLIC ACID [Concomitant]
  18. PHYTOMENADIONE [Concomitant]
  19. INSULIN [Concomitant]
  20. MULTI-VITAMINS [Concomitant]
  21. PIRITRAMIDE [Concomitant]
  22. DIPYRONE TAB [Concomitant]
  23. VALGANCICLOVIR HCL [Concomitant]
  24. ENOXAPARIN SODIUM [Concomitant]
  25. DICLOFENAC SODIUM [Concomitant]
  26. SULFAMETHOXAZOLE AND TRIMETHOPRIM [Concomitant]
  27. ACETAMINOPHEN [Concomitant]
  28. FUROSEMIDE W/SPIRONOLACTONE [Concomitant]
  29. URSODIOL [Concomitant]
  30. CARVEDILOL [Concomitant]
  31. PANTOPRAZOLE SODIUM [Concomitant]

REACTIONS (39)
  - ANURIA [None]
  - ARTERIOSCLEROSIS CORONARY ARTERY [None]
  - ATELECTASIS [None]
  - BILE DUCT NECROSIS [None]
  - BILE DUCT STENOSIS [None]
  - BILIARY TRACT DISORDER [None]
  - BLOOD BILIRUBIN INCREASED [None]
  - BRONCHOPNEUMONIA [None]
  - C-REACTIVE PROTEIN INCREASED [None]
  - CARDIAC FAILURE [None]
  - CARDIOMEGALY [None]
  - DEBRIDEMENT [None]
  - ESCHERICHIA SEPSIS [None]
  - GENERALISED OEDEMA [None]
  - GOITRE [None]
  - HEPATIC ARTERY STENOSIS [None]
  - HEPATIC ENZYME INCREASED [None]
  - HEPATIC INFARCTION [None]
  - HEPATIC NECROSIS [None]
  - JAUNDICE [None]
  - MECHANICAL VENTILATION [None]
  - MULTI-ORGAN FAILURE [None]
  - MYOCARDIAL INFARCTION [None]
  - MYOCARDIAL ISCHAEMIA [None]
  - PERITONITIS [None]
  - PLEURAL EFFUSION [None]
  - POST PROCEDURAL BILE LEAK [None]
  - POST PROCEDURAL COMPLICATION [None]
  - PULMONARY OEDEMA [None]
  - PYREXIA [None]
  - RESPIRATORY FAILURE [None]
  - SHOCK [None]
  - SOFT TISSUE NECROSIS [None]
  - SPLEEN DISORDER [None]
  - STENT PLACEMENT [None]
  - SURGERY [None]
  - THROMBOSIS [None]
  - VASCULAR STENOSIS [None]
  - WHITE BLOOD CELL COUNT INCREASED [None]
